FAERS Safety Report 8760742 (Version 2)
Quarter: 2012Q4

REPORT INFORMATION
  Report Type: 
  Country: NO (occurrence: NO)
  Receive Date: 20120830
  Receipt Date: 20120830
  Transmission Date: 20130627
  Serious: Yes (Death, Other)
  Sender: FDA-Public Use
  Company Number: NO-TEVA-329389ISR

PATIENT
  Age: 64 Year
  Sex: Female

DRUGS (7)
  1. CITALOPRAM [Suspect]
  2. ACETAMINOPHEN AND CODEINE [Suspect]
     Route: 048
  3. ZOLPIDEM [Suspect]
  4. DIAZEPAM [Suspect]
  5. NITRAZEPAM [Suspect]
  6. AMITRIPTYLINE [Suspect]
  7. MIANSERIN [Suspect]

REACTIONS (7)
  - Overdose [Fatal]
  - Toxicity to various agents [Fatal]
  - Hepatic steatosis [Fatal]
  - Hepatic fibrosis [Fatal]
  - Myocardial ischaemia [Fatal]
  - Inflammation [Fatal]
  - Arteriosclerosis coronary artery [Fatal]
